FAERS Safety Report 15878900 (Version 1)
Quarter: 2019Q1

REPORT INFORMATION
  Report Type: Spontaneous
  Country: US (occurrence: US)
  Receive Date: 20190125
  Receipt Date: 20190125
  Transmission Date: 20190417
  Serious: No
  Sender: FDA-Public Use
  Company Number: None

PATIENT
  Age: 33 Year
  Sex: Female
  Weight: 95.4 kg

DRUGS (5)
  1. TRAZODONE [Concomitant]
     Active Substance: TRAZODONE HYDROCHLORIDE
  2. METHYLPHENIDATE 10 MG [Concomitant]
  3. BUSPIRONE 30 MG [Concomitant]
  4. SERTRALINE [Suspect]
     Active Substance: SERTRALINE HYDROCHLORIDE
     Indication: ANXIETY
     Route: 048
     Dates: start: 20181008, end: 20190121
  5. SERTRALINE [Suspect]
     Active Substance: SERTRALINE HYDROCHLORIDE
     Indication: DEPRESSION
     Route: 048
     Dates: start: 20181008, end: 20190121

REACTIONS (5)
  - Therapy cessation [None]
  - Decreased appetite [None]
  - Suicidal ideation [None]
  - Insurance issue [None]
  - Diarrhoea [None]

NARRATIVE: CASE EVENT DATE: 20190121
